FAERS Safety Report 8275519-6 (Version None)
Quarter: 2012Q2

REPORT INFORMATION
  Report Type: 
  Country: None (occurrence: None)
  Receive Date: 20120411
  Receipt Date: 20120322
  Transmission Date: 20120825
  Serious: Yes (Death, Hospitalization, Other)
  Sender: FDA-Public Use
  Company Number: PH-BAXTER-2012BAX000396

PATIENT
  Sex: Female

DRUGS (1)
  1. DIANEAL PD2 WITH 2.5% DEXTROSE [Suspect]
     Route: 033
     Dates: start: 20090101

REACTIONS (9)
  - ACUTE RESPIRATORY FAILURE [None]
  - SEPTIC SHOCK [None]
  - HEPATIC FAILURE [None]
  - HYPOVOLAEMIC SHOCK [None]
  - GASTROINTESTINAL HAEMORRHAGE [None]
  - MENINGITIS TUBERCULOUS [None]
  - DIARRHOEA [None]
  - LOSS OF CONSCIOUSNESS [None]
  - VOMITING [None]
